FAERS Safety Report 15645667 (Version 2)
Quarter: 2019Q1

REPORT INFORMATION
  Report Type: Spontaneous
  Country: US (occurrence: US)
  Receive Date: 20181121
  Receipt Date: 20190103
  Transmission Date: 20190417
  Serious: No
  Sender: FDA-Public Use
  Company Number: US-NEUROCRINE BIOSCIENCES INC.-2018NBI03295

PATIENT
  Sex: Female
  Weight: 90.71 kg

DRUGS (1)
  1. INGREZZA [Suspect]
     Active Substance: VALBENAZINE
     Indication: TARDIVE DYSKINESIA
     Route: 048
     Dates: start: 20181121, end: 2018

REACTIONS (3)
  - Fatigue [Unknown]
  - Adverse drug reaction [Unknown]
  - Somnolence [Unknown]

NARRATIVE: CASE EVENT DATE: 2018
